FAERS Safety Report 5121310-9 (Version None)
Quarter: 2006Q4

REPORT INFORMATION
  Report Type: 
  Country: None (occurrence: None)
  Receive Date: 20061002
  Receipt Date: 20060919
  Transmission Date: 20070319
  Serious: Yes (Other)
  Sender: FDA-Public Use
  Company Number: 2006113903

PATIENT
  Age: 49 Year
  Sex: Female
  Weight: 70.7611 kg

DRUGS (4)
  1. DOSTINEX [Suspect]
     Indication: HYPERPROLACTINAEMIA
     Dosage: 0.25 MG (2 IN 1 WK)
     Dates: start: 20060201
  2. DOSTINEX [Suspect]
     Indication: PITUITARY TUMOUR
     Dosage: 0.25 MG (2 IN 1 WK)
     Dates: start: 20060201
  3. ESTROGENS [Concomitant]
  4. COLACE (DOCUSATE SODIUM) [Concomitant]

REACTIONS (15)
  - ABDOMINAL PAIN UPPER [None]
  - AGGRESSION [None]
  - ARTHRALGIA [None]
  - BACK PAIN [None]
  - FEELING ABNORMAL [None]
  - HALLUCINATION, VISUAL [None]
  - IMPAIRED WORK ABILITY [None]
  - MOVEMENT DISORDER [None]
  - PAIN [None]
  - PAIN IN EXTREMITY [None]
  - RECTOCELE [None]
  - SEDATION [None]
  - SPEECH DISORDER [None]
  - VERTIGO [None]
  - WEIGHT INCREASED [None]
